FAERS Safety Report 6457564-6 (Version None)
Quarter: 2009Q4

REPORT INFORMATION
  Report Type: 
  Country: None (occurrence: None)
  Receive Date: 20091125
  Receipt Date: 20091116
  Transmission Date: 20100525
  Serious: Yes (Other)
  Sender: FDA-Public Use
  Company Number: PHHY2009JP50644

PATIENT
  Age: 65 Year
  Sex: Female

DRUGS (1)
  1. VOLTAREN [Suspect]
     Dosage: 25 MG DAILY
     Route: 054
     Dates: start: 20080501, end: 20080501

REACTIONS (2)
  - ERYTHEMA MULTIFORME [None]
  - LIVER DISORDER [None]
